FAERS Safety Report 7232561-1 (Version None)
Quarter: 2011Q1

REPORT INFORMATION
  Report Type: 
  Country: None (occurrence: None)
  Receive Date: 20110106
  Receipt Date: 20101228
  Transmission Date: 20110831
  Serious: Yes (Hospitalization)
  Sender: FDA-Public Use
  Company Number: DSU-2010-06247

PATIENT
  Age: 57 Year
  Sex: Female
  Weight: 113.3993 kg

DRUGS (12)
  1. PRANDIN (REPAGLINIDE) (REPAGLINIDE) [Concomitant]
  2. DILTIAZEM [Concomitant]
  3. SINGULAIR (MONTELUKAS)( MONTELUKAST) [Concomitant]
  4. COQ10 (UBIDECARENONE) (UBIDECARENONE) [Concomitant]
  5. ASPIRIN [Concomitant]
  6. WELCHOL [Suspect]
     Indication: TYPE 2 DIABETES MELLITUS
     Dosage: 1250 MG (625 MQ,BID), PER ORAL
     Route: 048
     Dates: start: 20091101
  7. WELCHOL [Suspect]
     Indication: HYPERCHOLESTEROLAEMIA
     Dosage: 1250 MG (625 MQ,BID), PER ORAL
     Route: 048
     Dates: start: 20091101
  8. GLUCOPHAGE XR (METFORMIN HYDROCHLORIDE )(METFORM IN HYDROCHLORIDE) [Concomitant]
  9. LORATADINE (LORATADINE)(LORATADTNE) [Concomitant]
  10. PRAVASTATIN [Concomitant]
  11. LISINOPRIL [Concomitant]
  12. XOPENEX (LEVOSALBUTAMOL) (LEVOSALBUTAMOL) [Concomitant]

REACTIONS (5)
  - CARDIAC ABLATION [None]
  - ATRIAL FIBRILLATION [None]
  - HIGH DENSITY LIPOPROTEIN DECREASED [None]
  - OESOPHAGEAL SPASM [None]
  - BLOOD TRIGLYCERIDES INCREASED [None]
